FAERS Safety Report 5863829-9 (Version None)
Quarter: 2008Q3

REPORT INFORMATION
  Report Type: 
  Country: None (occurrence: None)
  Receive Date: 20080827
  Receipt Date: 20080819
  Transmission Date: 20090109
  Serious: Yes (Death)
  Sender: FDA-Public Use
  Company Number: US024416

PATIENT
  Sex: Male

DRUGS (1)
  1. PROVIGIL [Suspect]
     Dosage: ORAL
     Route: 048
     Dates: start: 20080101

REACTIONS (2)
  - ACCIDENTAL DEATH [None]
  - DRUG SCREEN FALSE POSITIVE [None]
